FAERS Safety Report 10148973 (Version 4)
Quarter: 2014Q3

REPORT INFORMATION
  Report Type: Spontaneous
  Country: US (occurrence: US)
  Receive Date: 20140502
  Receipt Date: 20140827
  Transmission Date: 20150326
  Serious: No
  Sender: FDA-Public Use
  Company Number: US-009507513-1404USA013162

PATIENT
  Age: 19 Year
  Sex: Female
  Weight: 64.85 kg

DRUGS (1)
  1. NEXPLANON [Suspect]
     Active Substance: ETONOGESTREL
     Indication: CONTRACEPTION
     Dosage: IMPLANT 68 MG
     Route: 059
     Dates: start: 20130916, end: 20140527

REACTIONS (6)
  - Device difficult to use [Recovered/Resolved]
  - Haemorrhage [Not Recovered/Not Resolved]
  - Complication of device removal [Recovered/Resolved]
  - Peripheral swelling [Unknown]
  - Tenderness [Unknown]
  - Device deployment issue [Recovered/Resolved]

NARRATIVE: CASE EVENT DATE: 20130916
